FAERS Safety Report 13558794 (Version 1)
Quarter: 2017Q2

REPORT INFORMATION
  Report Type: Spontaneous
  Country: US (occurrence: US)
  Receive Date: 20170518
  Receipt Date: 20170518
  Transmission Date: 20170830
  Serious: Yes (Other)
  Sender: FDA-Public Use
  Company Number: US-AMGEN-USASP2017073896

PATIENT
  Sex: Female

DRUGS (4)
  1. XGEVA [Suspect]
     Active Substance: DENOSUMAB
     Indication: BREAST CANCER STAGE IV
     Dosage: 120 MG, Q4WK
     Route: 058
  2. XGEVA [Suspect]
     Active Substance: DENOSUMAB
     Indication: OSTEOPOROSIS
  3. HALAVEN [Concomitant]
     Active Substance: ERIBULIN MESYLATE
     Dosage: UNK
     Dates: start: 2016
  4. XGEVA [Suspect]
     Active Substance: DENOSUMAB
     Indication: METASTASES TO BONE

REACTIONS (5)
  - Disease progression [Unknown]
  - Off label use [Unknown]
  - Osteonecrosis of jaw [Unknown]
  - Pain in jaw [Unknown]
  - Toothache [Unknown]

NARRATIVE: CASE EVENT DATE: 201704
